FAERS Safety Report 12628917 (Version 1)
Quarter: 2016Q3

REPORT INFORMATION
  Report Type: Spontaneous
  Country: US (occurrence: None)
  Receive Date: 20160805
  Receipt Date: 20160805
  Transmission Date: 20161109
  Serious: Yes (Death)
  Sender: FDA-Public Use
  Company Number: None

PATIENT
  Age: 58 Year
  Sex: Male

DRUGS (1)
  1. ENTECAVIR 0.5MG TEVA PHARMACEUTICALS [Suspect]
     Active Substance: ENTECAVIR
     Indication: HEPATITIS B
     Route: 048
     Dates: start: 20160404, end: 201607

REACTIONS (1)
  - Neoplasm malignant [None]

NARRATIVE: CASE EVENT DATE: 20160731
